FAERS Safety Report 4998944-5 (Version None)
Quarter: 2006Q2

REPORT INFORMATION
  Report Type: 
  Country: None (occurrence: None)
  Receive Date: 20060510
  Receipt Date: 20060504
  Transmission Date: 20061013
  Serious: Yes (Hospitalization, Disabling)
  Sender: FDA-Public Use
  Company Number: US-MERCK-0605USA01085

PATIENT
  Age: 50 Year
  Sex: Female
  Weight: 91 kg

DRUGS (16)
  1. VIOXX [Suspect]
     Indication: OSTEOARTHRITIS
     Route: 048
     Dates: start: 20001201, end: 20040901
  2. VIOXX [Suspect]
     Route: 048
     Dates: start: 20001201, end: 20040901
  3. VIOXX [Suspect]
     Route: 048
     Dates: start: 20001201, end: 20040901
  4. ZOLOFT [Concomitant]
     Route: 065
  5. PROPRANOLOL HYDROCHLORIDE [Concomitant]
     Route: 065
  6. [THERAPY UNSPECIFIED] [Concomitant]
     Route: 065
  7. ZOCOR [Concomitant]
     Route: 065
  8. PREVACID [Concomitant]
     Route: 065
  9. XANAX [Concomitant]
     Route: 065
  10. PLAVIX [Concomitant]
     Route: 065
  11. DARVOCET [Concomitant]
     Route: 065
  12. [THERAPY UNSPECIFIED] [Concomitant]
     Route: 065
  13. LIPITOR [Concomitant]
     Route: 065
  14. PEPCID [Concomitant]
     Route: 065
  15. [THERAPY UNSPECIFIED] [Concomitant]
     Route: 065
  16. MONOPRIL [Concomitant]
     Route: 065

REACTIONS (4)
  - ANXIETY [None]
  - CEREBROVASCULAR ACCIDENT [None]
  - DEPRESSION [None]
  - OVERDOSE [None]
